FAERS Safety Report 13658967 (Version 3)
Quarter: 2018Q2

REPORT INFORMATION
  Report Type: Spontaneous
  Country: NL (occurrence: NL)
  Receive Date: 20170616
  Receipt Date: 20180411
  Transmission Date: 20180711
  Serious: Yes (Death, Hospitalization)
  Sender: FDA-Public Use
  Company Number: NL-ALVOGEN-2017-ALVOGEN-092342

PATIENT
  Age: 55 Year
  Sex: Female

DRUGS (5)
  1. OLANZAPINE. [Suspect]
     Active Substance: OLANZAPINE
     Indication: OVERDOSE
  2. SERTRALINE [Interacting]
     Active Substance: SERTRALINE HYDROCHLORIDE
     Indication: OVERDOSE
  3. NIFEDIPINE. [Suspect]
     Active Substance: NIFEDIPINE
     Indication: OVERDOSE
  4. PARACETAMOL [Suspect]
     Active Substance: ACETAMINOPHEN
     Indication: OVERDOSE
  5. LORAZEPAM. [Suspect]
     Active Substance: LORAZEPAM
     Indication: OVERDOSE

REACTIONS (3)
  - Overdose [Fatal]
  - Serotonin syndrome [Fatal]
  - Drug interaction [Fatal]
